FAERS Safety Report 8585862-9 (Version None)
Quarter: 2012Q3

REPORT INFORMATION
  Report Type: 
  Country: None (occurrence: None)
  Receive Date: 20120810
  Receipt Date: 20070518
  Transmission Date: 20120928
  Serious: Yes (Other)
  Sender: FDA-Public Use
  Company Number: CO-PFIZER INC-2012191841

PATIENT
  Age: 67 Year
  Sex: Female

DRUGS (9)
  1. VERAPAMIL [Concomitant]
     Dosage: 120 MG, TWICE DAILY
  2. LIPITOR [Suspect]
     Indication: DYSLIPIDAEMIA
     Dosage: 10 MG, ONCE DAILY
  3. ACETYLSALICYLIC ACID [Concomitant]
     Dosage: 100 MG, ONCE DAILY
  4. ACCUPRIL [Suspect]
     Indication: HYPERTENSION
     Dosage: 20 MG, TWICE DAILY
  5. GLIBENCLAMIDE [Concomitant]
     Dosage: 5 MG, THREE TIMES DAILY
  6. GLIBENCLAMIDE [Concomitant]
     Dosage: 5 MG, ONCE DAILY
  7. FENYTOIN [Concomitant]
     Dosage: 100 MG, ONCE DAILY
  8. METFORMIN [Concomitant]
     Dosage: 850 MG, TWICE DAILY
  9. LOSARTAN [Concomitant]
     Dosage: 50 MG, TWICE DAILY

REACTIONS (4)
  - AORTIC ARTERIOSCLEROSIS [None]
  - CONVULSION [None]
  - HAEMATURIA [None]
  - LEFT VENTRICULAR HYPERTROPHY [None]
